FAERS Safety Report 5448230-4 (Version None)
Quarter: 2007Q3

REPORT INFORMATION
  Report Type: 
  Country: None (occurrence: None)
  Receive Date: 20070906
  Receipt Date: 20070906
  Transmission Date: 20080115
  Serious: Yes (Other)
  Sender: FDA-Public Use
  Company Number: None

PATIENT
  Sex: Male

DRUGS (7)
  1. REVLIMID [Suspect]
     Indication: MULTIPLE MYELOMA
     Dosage: 25MG DAILY X 21D Q28D PO
     Route: 048
  2. MORPHINE [Concomitant]
  3. NIFEDIPINE [Concomitant]
  4. LOVASTATIN [Concomitant]
  5. ATENOLOL [Concomitant]
  6. NITROGLYCERIN SL [Concomitant]
  7. OMEPRAZOLE [Concomitant]

REACTIONS (1)
  - NEUTROPENIA [None]
